FAERS Safety Report 15116641 (Version 1)
Quarter: 2018Q3

REPORT INFORMATION
  Report Type: Spontaneous
  Country: US (occurrence: US)
  Receive Date: 20180706
  Receipt Date: 20180706
  Transmission Date: 20181010
  Serious: Yes (Other)
  Sender: FDA-Public Use
  Company Number: US-ALLERGAN-1833818US

PATIENT
  Age: 32 Year
  Sex: Male

DRUGS (3)
  1. ARMOUR THYROID [Suspect]
     Active Substance: THYROID, PORCINE
     Indication: WEIGHT CONTROL
     Dosage: 120 MG, QD
     Route: 065
  2. TESTOSTERONE. [Interacting]
     Active Substance: TESTOSTERONE
     Indication: HORMONE REPLACEMENT THERAPY
     Route: 065
  3. ARMOUR THYROID [Interacting]
     Active Substance: THYROID, PORCINE
     Indication: HYPOTHYROIDISM

REACTIONS (4)
  - Coronary artery occlusion [Unknown]
  - Acute myocardial infarction [Unknown]
  - Drug interaction [Unknown]
  - Off label use [Unknown]
